FAERS Safety Report 23279287 (Version 4)
Quarter: 2024Q4

REPORT INFORMATION
  Report Type: Spontaneous
  Country: US (occurrence: US)
  Receive Date: 20231209
  Receipt Date: 20241213
  Transmission Date: 20250114
  Serious: No
  Sender: SANOFI AVENTIS
  Company Number: US-SA-SAC20231204000013

PATIENT
  Age: 2 Year
  Sex: Male

DRUGS (6)
  1. ALPROLIX [Suspect]
     Active Substance: EFTRENONACOG ALFA
     Dosage: 2215 U
     Route: 042
  2. ALPROLIX [Suspect]
     Active Substance: EFTRENONACOG ALFA
     Dosage: 2215 U
     Route: 042
  3. ALPROLIX [Suspect]
     Active Substance: EFTRENONACOG ALFA
     Dosage: 2285  U, QW
     Route: 042
  4. ALPROLIX [Suspect]
     Active Substance: EFTRENONACOG ALFA
     Dosage: 2285  U, QW
     Route: 042
  5. ALPROLIX [Suspect]
     Active Substance: EFTRENONACOG ALFA
     Dosage: 2319 U, QW
     Route: 042
  6. ALPROLIX [Suspect]
     Active Substance: EFTRENONACOG ALFA
     Dosage: 2319 U, QW
     Route: 042

REACTIONS (8)
  - Head injury [Recovering/Resolving]
  - Contusion [Recovering/Resolving]
  - Fall [Unknown]
  - Limb injury [Unknown]
  - Road traffic accident [Unknown]
  - Erythema [Unknown]
  - Anxiety [Unknown]
  - Aggression [Unknown]

NARRATIVE: CASE EVENT DATE: 20231126
